FAERS Safety Report 20834510 (Version 1)
Quarter: 2022Q2

REPORT INFORMATION
  Report Type: Report from Study
  Country: CO (occurrence: CO)
  Receive Date: 20220516
  Receipt Date: 20220516
  Transmission Date: 20220721
  Serious: Yes (Other)
  Sender: FDA-Public Use
  Company Number: CO-ALLERGAN-2215741US

PATIENT
  Sex: Female

DRUGS (2)
  1. BOTULINUM TOXIN TYPE A [Suspect]
     Active Substance: BOTULINUM TOXIN TYPE A
     Indication: Facial spasm
     Dosage: 100 UNITS, SINGLE
     Route: 058
     Dates: start: 20210722, end: 20210722
  2. BOTULINUM TOXIN TYPE A [Suspect]
     Active Substance: BOTULINUM TOXIN TYPE A
     Indication: Dystonia

REACTIONS (6)
  - Transient ischaemic attack [Unknown]
  - Facial spasm [Recovering/Resolving]
  - Blood pressure increased [Recovering/Resolving]
  - Illness [Recovering/Resolving]
  - Incorrect route of product administration [Unknown]
  - Headache [Recovering/Resolving]

NARRATIVE: CASE EVENT DATE: 20210101
